FAERS Safety Report 11329193 (Version 2)
Quarter: 2015Q3

REPORT INFORMATION
  Report Type: Report from Study
  Country: DE (occurrence: DE)
  Receive Date: 20150803
  Receipt Date: 20150820
  Transmission Date: 20151125
  Serious: Yes (Hospitalization)
  Sender: FDA-Public Use
  Company Number: DE-ROCHE-1552200

PATIENT
  Age: 78 Year
  Sex: Female
  Weight: 88 kg

DRUGS (1)
  1. TOCILIZUMAB [Suspect]
     Active Substance: TOCILIZUMAB
     Indication: RHEUMATOID ARTHRITIS
     Route: 042
     Dates: start: 20140624

REACTIONS (2)
  - Dizziness [Recovering/Resolving]
  - Renal artery stenosis [Recovering/Resolving]

NARRATIVE: CASE EVENT DATE: 20150112
